FAERS Safety Report 7235014-X (Version None)
Quarter: 2011Q1

REPORT INFORMATION
  Report Type: 
  Country: None (occurrence: None)
  Receive Date: 20110114
  Receipt Date: 20110114
  Transmission Date: 20110831
  Serious: No
  Sender: FDA-Public Use
  Company Number: None

PATIENT
  Age: 46 Year
  Sex: Female
  Weight: 74.8435 kg

DRUGS (1)
  1. DILANTIN KAPSEAL [Suspect]
     Indication: CONVULSION
     Dosage: 300/330 ALTERNATE AT NIGHT
     Dates: start: 19850101, end: 20110101

REACTIONS (12)
  - DIZZINESS [None]
  - HYPERHIDROSIS [None]
  - INFLUENZA [None]
  - BURNING SENSATION [None]
  - CHEST PAIN [None]
  - LETHARGY [None]
  - TOXICITY TO VARIOUS AGENTS [None]
  - ANXIETY [None]
  - PRODUCT FORMULATION ISSUE [None]
  - HEADACHE [None]
  - INSOMNIA [None]
  - MALAISE [None]
